FAERS Safety Report 16446245 (Version 1)
Quarter: 2019Q2

REPORT INFORMATION
  Report Type: Spontaneous
  Country: NL (occurrence: PL)
  Receive Date: 20190618
  Receipt Date: 20190618
  Transmission Date: 20190711
  Serious: Yes (Death, Other)
  Sender: FDA-Public Use
  Company Number: PL-FRESENIUS KABI-FK201906585

PATIENT
  Age: 15 Year
  Sex: Male

DRUGS (3)
  1. CASPOFUNGIN (MANUFACTURER UNKNOWN) [Suspect]
     Active Substance: CASPOFUNGIN
     Indication: MUCORMYCOSIS
     Dosage: UNK
     Route: 065
  2. AMPHOTERICIN B CHOLESTERYL SULFATE COMPLEX [Suspect]
     Active Substance: AMPHOTERICIN B CHOLESTERYL SULFATE
     Indication: MUCORMYCOSIS
     Dosage: UNK
     Route: 065
  3. VORICONAZOLE (MANUFACTURER UNKNOWN) [Suspect]
     Active Substance: VORICONAZOLE
     Indication: MUCORMYCOSIS
     Dosage: UNK
     Route: 065

REACTIONS (4)
  - Leukaemia recurrent [Unknown]
  - General physical health deterioration [Unknown]
  - Death [Fatal]
  - Respiratory failure [Unknown]
